FAERS Safety Report 10992558 (Version 2)
Quarter: 2015Q2

REPORT INFORMATION
  Report Type: Spontaneous
  Country: US (occurrence: US)
  Receive Date: 20150406
  Receipt Date: 20150525
  Transmission Date: 20150821
  Serious: Yes (Hospitalization)
  Sender: FDA-Public Use
  Company Number: US-JNJFOC-20140100972

PATIENT
  Sex: Female
  Weight: 63.5 kg

DRUGS (2)
  1. METHOTREXATE [Concomitant]
     Active Substance: METHOTREXATE
     Indication: PITYRIASIS RUBRA PILARIS
     Dosage: DOSAGE 20 MG
     Route: 048
  2. REMICADE [Suspect]
     Active Substance: INFLIXIMAB
     Indication: PITYRIASIS RUBRA PILARIS
     Route: 042
     Dates: end: 2010

REACTIONS (6)
  - Adverse drug reaction [Recovered/Resolved]
  - Pityriasis rubra pilaris [Recovered/Resolved]
  - Drug effect decreased [Recovered/Resolved]
  - Product use issue [Unknown]
  - Alopecia [Recovered/Resolved]
  - Abasia [Recovered/Resolved]

NARRATIVE: CASE EVENT DATE: 2010
